FAERS Safety Report 5629981-5 (Version None)
Quarter: 2008Q1

REPORT INFORMATION
  Report Type: 
  Country: None (occurrence: None)
  Receive Date: 20080218
  Receipt Date: 20080207
  Transmission Date: 20080703
  Serious: Yes (Hospitalization)
  Sender: FDA-Public Use
  Company Number: GB-ROCHE-546282

PATIENT
  Age: 32 Year
  Sex: Female

DRUGS (2)
  1. INTERFERON ALFA [Suspect]
     Indication: ESSENTIAL THROMBOCYTHAEMIA
     Route: 058
  2. INTERFERON ALFA [Suspect]
     Dosage: DOSE WAS GRADUALLY REDUCED TO 3 MEGAUNITS AT THE TIME OF ADMISSION.
     Route: 058

REACTIONS (2)
  - HYPOTHYROIDISM [None]
  - MANIA [None]
